FAERS Safety Report 9146872 (Version 1)
Quarter: 2013Q1

REPORT INFORMATION
  Report Type: Spontaneous
  Country: US (occurrence: US)
  Receive Date: 20130307
  Receipt Date: 20130307
  Transmission Date: 20140127
  Serious: No
  Sender: FDA-Public Use
  Company Number: US-BAYER-2013-028218

PATIENT
  Age: 36 Year
  Sex: Female

DRUGS (2)
  1. FINACEA [Suspect]
     Indication: ACNE
     Dosage: UNK
     Dates: start: 20130207, end: 20130219
  2. FINACEA [Suspect]
     Indication: ROSACEA

REACTIONS (2)
  - Dry skin [None]
  - Acne cystic [None]
